FAERS Safety Report 15729841 (Version 1)
Quarter: 2018Q4

REPORT INFORMATION
  Report Type: Spontaneous
  Country: IT (occurrence: IT)
  Receive Date: 20181217
  Receipt Date: 20181217
  Transmission Date: 20190205
  Serious: Yes (Hospitalization)
  Sender: FDA-Public Use
  Company Number: IT-PFIZER INC-2018513763

PATIENT
  Age: 48 Year
  Sex: Male

DRUGS (2)
  1. DALACIN C FOSFATO [Suspect]
     Active Substance: CLINDAMYCIN PHOSPHATE
     Indication: INFECTION
     Dosage: 1 DF, 1X/DAY (600 MG/4ML SOLUTION INJECTION)
     Route: 030
     Dates: start: 20180907, end: 20181002
  2. MINOCIN [Suspect]
     Active Substance: MINOCYCLINE HYDROCHLORIDE
     Indication: INFECTION
     Dosage: 2 DF, 1X/DAY (100 MG CAPSULE RIGIDE)
     Route: 048
     Dates: start: 20180907, end: 20181002

REACTIONS (1)
  - Lip oedema [Unknown]

NARRATIVE: CASE EVENT DATE: 20181002
